FAERS Safety Report 9882185 (Version 2)
Quarter: 2014Q1

REPORT INFORMATION
  Report Type: Spontaneous
  Country: US (occurrence: US)
  Receive Date: 20140207
  Receipt Date: 20140212
  Transmission Date: 20141002
  Serious: No
  Sender: FDA-Public Use
  Company Number: US-TEVA-461326USA

PATIENT
  Age: 54 Year
  Sex: Female

DRUGS (1)
  1. COPAXONE [Suspect]
     Indication: MULTIPLE SCLEROSIS
     Dates: start: 20111206

REACTIONS (5)
  - Chest pain [Unknown]
  - Hypotension [Unknown]
  - Blood potassium decreased [Unknown]
  - Dyspnoea [Unknown]
  - Palpitations [Unknown]
